FAERS Safety Report 5115697-0 (Version None)
Quarter: 2006Q3

REPORT INFORMATION
  Report Type: 
  Country: None (occurrence: None)
  Receive Date: 20060926
  Receipt Date: 20060926
  Transmission Date: 20061208
  Serious: Yes (Other)
  Sender: FDA-Public Use
  Company Number: None

PATIENT
  Sex: Male
  Weight: 81.6475 kg

DRUGS (6)
  1. GEODON [Suspect]
     Indication: BIPOLAR DISORDER
     Dosage: 20 MG TWO BID PO
     Route: 048
     Dates: start: 20060203
  2. GEODON [Suspect]
     Indication: MANIA
     Dosage: 20 MG TWO BID PO
     Route: 048
     Dates: start: 20060203
  3. GEODON [Suspect]
     Indication: PSYCHOTIC DISORDER
     Dosage: 20 MG TWO BID PO
     Route: 048
     Dates: start: 20060203
  4. DEPAKOTE [Suspect]
     Indication: BIPOLAR DISORDER
     Dosage: SEE IMAGE
     Route: 048
     Dates: start: 20040901
  5. DEPAKOTE [Suspect]
     Indication: MANIA
     Dosage: SEE IMAGE
     Route: 048
     Dates: start: 20040901
  6. DEPAKOTE [Suspect]
     Indication: PSYCHOTIC DISORDER
     Dosage: SEE IMAGE
     Route: 048
     Dates: start: 20040901

REACTIONS (13)
  - BLADDER SPASM [None]
  - DIZZINESS [None]
  - EAR INFECTION [None]
  - FLUSHING [None]
  - HYPERHIDROSIS [None]
  - ILL-DEFINED DISORDER [None]
  - INDIFFERENCE [None]
  - MYDRIASIS [None]
  - NAUSEA [None]
  - PHOTOPHOBIA [None]
  - SOMNOLENCE [None]
  - VISION BLURRED [None]
  - VISUAL DISTURBANCE [None]
